FAERS Safety Report 10061307 (Version 1)
Quarter: 2014Q2

REPORT INFORMATION
  Report Type: Spontaneous
  Country: FR (occurrence: FR)
  Receive Date: 20140407
  Receipt Date: 20140407
  Transmission Date: 20141212
  Serious: Yes (Other)
  Sender: FDA-Public Use
  Company Number: FR-EMCURE-000769

PATIENT
  Sex: Male

DRUGS (1)
  1. BICNU [Suspect]
     Indication: PRODUCT USED FOR UNKNOWN INDICATION
     Route: 045
     Dates: start: 201310

REACTIONS (2)
  - Off label use [Unknown]
  - Epistaxis [Unknown]
